FAERS Safety Report 5501400-9 (Version None)
Quarter: 2007Q4

REPORT INFORMATION
  Report Type: 
  Country: None (occurrence: None)
  Receive Date: 20071026
  Receipt Date: 20071010
  Transmission Date: 20080405
  Serious: Yes (Life-Threatening, Hospitalization)
  Sender: FDA-Public Use
  Company Number: 8027577

PATIENT
  Age: 34 Year
  Sex: Male

DRUGS (1)
  1. PREDNISOLONE [Suspect]
     Indication: CROHN'S DISEASE
     Dosage: PO
     Route: 048

REACTIONS (1)
  - GALLBLADDER PERFORATION [None]
